FAERS Safety Report 4362177-6 (Version None)
Quarter: 2004Q2

REPORT INFORMATION
  Report Type: 
  Country: None (occurrence: None)
  Receive Date: 20040517
  Receipt Date: 20040505
  Transmission Date: 20050107
  Serious: Yes (Other)
  Sender: FDA-Public Use
  Company Number: REL-RIR-105

PATIENT
  Age: 65 Year
  Sex: Male

DRUGS (5)
  1. RYTHMOL [Suspect]
     Indication: ATRIAL FIBRILLATION
  2. RYTHMOL [Suspect]
     Indication: ATRIAL FIBRILLATION
     Dates: end: 20030101
  3. RYTHMOL [Suspect]
     Indication: ATRIAL FIBRILLATION
     Dates: start: 20040323
  4. PMS-PROPAFENONE (PROPAFENONE) (TABLETS) [Suspect]
     Indication: ATRIAL FIBRILLATION
     Dosage: 150 MG 4 DAILY ORAL
     Route: 048
  5. PMS-PROPAFENONE (PROPAFENONE) (TABLETS) [Suspect]
     Indication: ATRIAL FIBRILLATION
     Dosage: 1200 MG QD ORAL
     Route: 048
     Dates: start: 20030101, end: 20040323

REACTIONS (2)
  - ATRIAL FIBRILLATION [None]
  - DRUG INEFFECTIVE [None]
